FAERS Safety Report 5788197-2 (Version None)
Quarter: 2008Q2

REPORT INFORMATION
  Report Type: 
  Country: None (occurrence: None)
  Receive Date: 20080620
  Receipt Date: 20080609
  Transmission Date: 20081010
  Serious: Yes (Other)
  Sender: FDA-Public Use
  Company Number: 2008S1000074

PATIENT
  Age: 57 Year
  Sex: Female

DRUGS (2)
  1. INOMAX [Suspect]
     Indication: PULMONARY HYPERTENSION
     Dosage: 20 PPM; CONT; INH, 10 PPM; CONT;
     Route: 055
     Dates: start: 20080519
  2. INOMAX DF (DELIVERY SYSTEM) [Concomitant]

REACTIONS (2)
  - BLOOD PRESSURE DECREASED [None]
  - DEVICE FAILURE [None]
